FAERS Safety Report 9360829 (Version 1)
Quarter: 2013Q2

REPORT INFORMATION
  Report Type: Other
  Country: US (occurrence: US)
  Receive Date: 20130621
  Receipt Date: 20130621
  Transmission Date: 20140414
  Serious: Yes (Other)
  Sender: FDA-Public Use
  Company Number: US-EISAI INC-E7272-00165-SPO-US

PATIENT
  Age: 43 Year
  Sex: Male

DRUGS (2)
  1. ONTAK [Suspect]
     Indication: ANAPLASTIC LARGE-CELL LYMPHOMA
     Route: 041
  2. TARGRETIN [Suspect]
     Indication: ANAPLASTIC LARGE-CELL LYMPHOMA
     Route: 048

REACTIONS (5)
  - Erythema [Recovered/Resolved]
  - Capillary leak syndrome [Recovered/Resolved]
  - Myalgia [Unknown]
  - Fatigue [Unknown]
  - Dyspnoea [Unknown]
